FAERS Safety Report 7748770-9 (Version None)
Quarter: 2011Q3

REPORT INFORMATION
  Report Type: 
  Country: None (occurrence: None)
  Receive Date: 20110913
  Receipt Date: 20110913
  Transmission Date: 20111222
  Serious: Yes (Other)
  Sender: FDA-Public Use
  Company Number: None

PATIENT
  Age: 22 Year
  Sex: Male
  Weight: 79.3795 kg

DRUGS (2)
  1. DIVALPROEX SODIUM [Suspect]
     Indication: BIPOLAR DISORDER
     Dosage: ONE TAB THREE TIMES DY (TRIED GENERIC IN 2008 FOR 3 DAYS)
  2. DIVALPROEX SODIUM [Suspect]
     Indication: ATTENTION DEFICIT/HYPERACTIVITY DISORDER
     Dosage: ONE TAB THREE TIMES DY (TRIED GENERIC IN 2008 FOR 3 DAYS)

REACTIONS (3)
  - PRODUCT SUBSTITUTION ISSUE [None]
  - PSYCHOTIC DISORDER [None]
  - MANIA [None]
